FAERS Safety Report 6402932-1 (Version None)
Quarter: 2009Q4

REPORT INFORMATION
  Report Type: 
  Country: None (occurrence: None)
  Receive Date: 20091014
  Receipt Date: 20091014
  Transmission Date: 20100525
  Serious: Yes (Other)
  Sender: FDA-Public Use
  Company Number: None

PATIENT
  Sex: Female
  Weight: 51.7101 kg

DRUGS (1)
  1. ARICEPT [Suspect]
     Indication: MEMORY IMPAIRMENT
     Dosage: 1 DAILY MOUTH
     Route: 048
     Dates: start: 20090916, end: 20090922

REACTIONS (12)
  - COLD SWEAT [None]
  - DECREASED APPETITE [None]
  - DIZZINESS [None]
  - EMOTIONAL DISORDER [None]
  - FATIGUE [None]
  - FEELING HOT [None]
  - HEADACHE [None]
  - MUSCLE SPASMS [None]
  - NAUSEA [None]
  - NIGHTMARE [None]
  - PSYCHOTIC DISORDER [None]
  - SOMNOLENCE [None]
